FAERS Safety Report 7898576-5 (Version None)
Quarter: 2011Q4

REPORT INFORMATION
  Report Type: 
  Country: None (occurrence: None)
  Receive Date: 20111107
  Receipt Date: 20111103
  Transmission Date: 20120403
  Serious: Yes (Hospitalization)
  Sender: FDA-Public Use
  Company Number: DE-ABBOTT-11P-062-0868385-00

PATIENT
  Sex: Female

DRUGS (3)
  1. MESALAMINE [Concomitant]
     Indication: CROHN'S DISEASE
     Route: 054
     Dates: start: 20110101
  2. CORTISONE ACETATE [Concomitant]
     Indication: CROHN'S DISEASE
     Dates: start: 20110101
  3. HUMIRA [Suspect]
     Indication: CROHN'S DISEASE
     Route: 058
     Dates: start: 20110314, end: 20110930

REACTIONS (2)
  - LABORATORY TEST ABNORMAL [None]
  - EAR INFECTION [None]
